FAERS Safety Report 6133155-1 (Version None)
Quarter: 2009Q1

REPORT INFORMATION
  Report Type: 
  Country: None (occurrence: None)
  Receive Date: 20090325
  Receipt Date: 20090325
  Transmission Date: 20090719
  Serious: No
  Sender: FDA-Public Use
  Company Number: None

PATIENT
  Sex: Male
  Weight: 87.9978 kg

DRUGS (2)
  1. RESPIRIDAL 20 JANSSEN PHARMACEUTICALS [Suspect]
     Indication: BIPOLAR DISORDER
     Dosage: 2 TIMES A DAY PER DAY
     Dates: start: 19970101, end: 20030901
  2. RESPIRIDAL 1 JANSSEN PHARMACEUTICAL [Suspect]
     Indication: BIPOLAR DISORDER
     Dosage: 2 TIMES A DAY PER DAY
     Dates: start: 20030901, end: 20050101

REACTIONS (7)
  - CARDIOMEGALY [None]
  - CONDITION AGGRAVATED [None]
  - DRY MOUTH [None]
  - HEPATOMEGALY [None]
  - LOSS OF CONSCIOUSNESS [None]
  - TARDIVE DYSKINESIA [None]
  - TREMOR [None]
